FAERS Safety Report 24258562 (Version 1)
Quarter: 2024Q3

REPORT INFORMATION
  Report Type: Spontaneous
  Country: US (occurrence: US)
  Receive Date: 20240828
  Receipt Date: 20240828
  Transmission Date: 20241017
  Serious: Yes (Other)
  Sender: AURINIA PHARMACEUTICALS
  Company Number: US-AURINIA PHARMACEUTICALS INC.-AUR-006428

PATIENT
  Age: 48 Year
  Sex: Female

DRUGS (1)
  1. LUPKYNIS [Suspect]
     Active Substance: VOCLOSPORIN
     Indication: Lupus nephritis
     Dosage: 23.7 MILLIGRAM, BID
     Route: 048
     Dates: start: 20240801

REACTIONS (10)
  - Systemic lupus erythematosus [Not Recovered/Not Resolved]
  - Dyspnoea [Not Recovered/Not Resolved]
  - Stress [Not Recovered/Not Resolved]
  - Feeling abnormal [Unknown]
  - Vomiting [Unknown]
  - Diarrhoea [Unknown]
  - Cough [Not Recovered/Not Resolved]
  - Treatment noncompliance [Unknown]
  - Product dose omission issue [Unknown]
  - Therapy interrupted [Unknown]

NARRATIVE: CASE EVENT DATE: 20240801
